FAERS Safety Report 14162597 (Version 1)
Quarter: 2017Q4

REPORT INFORMATION
  Report Type: Spontaneous
  Country: FR (occurrence: FR)
  Receive Date: 20171106
  Receipt Date: 20171106
  Transmission Date: 20180321
  Serious: Yes (Other)
  Sender: FDA-Public Use
  Company Number: FR-MERCK KGAA-2033336

PATIENT
  Age: 68 Year
  Sex: Female

DRUGS (1)
  1. NOVOTHYROX [Suspect]
     Active Substance: LEVOTHYROXINE SODIUM
     Indication: THYROIDECTOMY
     Route: 048
     Dates: start: 201705

REACTIONS (6)
  - Fatigue [None]
  - Arthralgia [None]
  - Petit mal epilepsy [None]
  - Blood thyroid stimulating hormone increased [None]
  - Somnolence [None]
  - Nausea [None]

NARRATIVE: CASE EVENT DATE: 20170509
